FAERS Safety Report 5308275-1 (Version None)
Quarter: 2007Q2

REPORT INFORMATION
  Report Type: 
  Country: None (occurrence: None)
  Receive Date: 20070426
  Receipt Date: 20070424
  Transmission Date: 20071010
  Serious: Yes (Hospitalization)
  Sender: FDA-Public Use
  Company Number: US-RB-005772-07

PATIENT
  Sex: Female
  Weight: 84.15 kg

DRUGS (21)
  1. SUBUTEX [Suspect]
     Route: 060
     Dates: start: 20070317, end: 20070320
  2. SUBUTEX [Suspect]
     Route: 060
     Dates: start: 20070321, end: 20070325
  3. SUBUTEX [Suspect]
     Route: 060
     Dates: start: 20070331, end: 20070405
  4. GEODON [Concomitant]
     Indication: BACK PAIN
     Dosage: PATIENT TAKES AT BEDTIME.
     Route: 048
     Dates: start: 20070317
  5. GEODON [Concomitant]
     Dosage: PATIENT TAKES AT BEDTIME.
     Route: 048
     Dates: start: 20070317
  6. MEVACOR [Concomitant]
     Route: 048
     Dates: start: 20070302
  7. EFFEXOR XR [Concomitant]
     Indication: DEPRESSION
     Route: 048
  8. CHANTIX [Concomitant]
     Indication: SMOKING CESSATION THERAPY
     Route: 048
     Dates: start: 20070307
  9. PROPRANOLOL [Concomitant]
     Indication: HYPERTENSION
     Route: 048
  10. ALDACTAZIDE [Concomitant]
     Indication: HYPERTENSION
     Route: 048
  11. OXYCODONE HCL [Concomitant]
     Dosage: DOSAGE TAKEN UNKNOWN.
     Route: 048
     Dates: start: 20070325, end: 20070330
  12. OXYCODONE HCL [Concomitant]
     Dosage: DOSAGE UNKNOWN.
     Route: 048
     Dates: start: 20070406
  13. SOLU-MEDROL [Concomitant]
     Dosage: VARIOUS DOSAGES GIVEN DURING HOSPITALIZATION.
     Route: 042
     Dates: start: 20070325, end: 20070329
  14. SOLU-MEDROL [Concomitant]
     Dosage: VARIOUS DOSAGES GIVEN WHILE IN HOSPITAL.
     Route: 042
     Dates: start: 20070405, end: 20070406
  15. CEFTIN [Concomitant]
     Indication: WHITE BLOOD CELL COUNT INCREASED
     Route: 048
     Dates: start: 20070331, end: 20070405
  16. ROCEPHIN [Concomitant]
     Indication: WHITE BLOOD CELL COUNT INCREASED
     Route: 042
     Dates: start: 20070325, end: 20070330
  17. ALBUTEROL [Concomitant]
     Route: 055
     Dates: start: 20070325
  18. PREDNISONE TAB [Suspect]
     Dosage: VARIOUS DOSES (EXACT UNKNOWN) TAKEN AS SHE IS CURRENTLY TAPERING DOWN OFF OF PREDNISONE.
     Route: 048
     Dates: start: 20070330, end: 20070405
  19. PREDNISONE TAB [Suspect]
     Dosage: VARIOUS TAPERING DOSAGES TAKEN.
     Route: 048
     Dates: start: 20070407, end: 20070418
  20. LEVAQUIN [Concomitant]
     Indication: WHITE BLOOD CELL COUNT INCREASED
     Route: 042
     Dates: start: 20070405, end: 20070407
  21. LEVAQUIN [Concomitant]
     Route: 048
     Dates: start: 20070408, end: 20070414

REACTIONS (7)
  - BLOOD GLUCOSE INCREASED [None]
  - DYSPNOEA [None]
  - HEADACHE [None]
  - HYPERHIDROSIS [None]
  - IRRITABILITY [None]
  - URINE ABNORMALITY [None]
  - WHITE BLOOD CELL COUNT INCREASED [None]
